FAERS Safety Report 8911542 (Version 1)
Quarter: 2012Q4

REPORT INFORMATION
  Report Type: Spontaneous
  Country: US (occurrence: None)
  Receive Date: 20121114
  Receipt Date: 20121114
  Transmission Date: 20130627
  Serious: Yes (Other)
  Sender: FDA-Public Use
  Company Number: None

PATIENT
  Age: 11 Year
  Sex: Male
  Weight: 31.3 kg

DRUGS (2)
  1. MONTELUKAST SODIUM [Suspect]
     Indication: ASTHMA
     Route: 048
     Dates: start: 20120929
  2. MONTELUKAST SODIUM [Suspect]
     Indication: WHEEZING
     Route: 048
     Dates: start: 20120929

REACTIONS (2)
  - Wheezing [None]
  - Product substitution issue [None]
